FAERS Safety Report 9850470 (Version 1)
Quarter: 2014Q1

REPORT INFORMATION
  Report Type: Spontaneous
  Country: BR (occurrence: BR)
  Receive Date: 20140128
  Receipt Date: 20140128
  Transmission Date: 20141002
  Serious: Yes (Other)
  Sender: FDA-Public Use
  Company Number: BR-JNJFOC-20140113772

PATIENT
  Age: 47 Year
  Sex: Female

DRUGS (11)
  1. REMICADE [Suspect]
     Indication: RHEUMATOID ARTHRITIS
     Route: 042
     Dates: start: 20131003
  2. REMICADE [Suspect]
     Indication: RHEUMATOID ARTHRITIS
     Route: 042
     Dates: start: 20130802
  3. OMEPRAZOLE [Concomitant]
     Indication: GASTRIC DISORDER
     Route: 065
  4. LOSARTAN [Concomitant]
     Indication: HYPERTENSION
     Route: 065
  5. FOLIC ACID [Concomitant]
     Indication: RHEUMATOID ARTHRITIS
     Route: 065
  6. PREDNISONE [Concomitant]
     Indication: RHEUMATOID ARTHRITIS
     Route: 065
  7. HYDROCHLOROTHIAZIDE [Concomitant]
     Indication: BLOOD PRESSURE
     Route: 065
  8. NAPROXEN [Concomitant]
     Route: 065
  9. GLIFAGE [Concomitant]
     Indication: DIABETES MELLITUS
     Route: 065
  10. NORTRIPTYLINE HYDROCHLORIDE [Concomitant]
     Indication: DEPRESSION
     Route: 065
  11. CLONAZEPAM [Concomitant]
     Indication: DEPRESSION
     Route: 065

REACTIONS (3)
  - Hysterectomy [Recovered/Resolved]
  - Cystopexy [Recovered/Resolved]
  - Asthma [Not Recovered/Not Resolved]
